FAERS Safety Report 8369138-0 (Version None)
Quarter: 2012Q2

REPORT INFORMATION
  Report Type: 
  Country: None (occurrence: None)
  Receive Date: 20120518
  Receipt Date: 20120511
  Transmission Date: 20120825
  Serious: Yes (Other)
  Sender: FDA-Public Use
  Company Number: US-TEVA-333694USA

PATIENT
  Sex: Female

DRUGS (2)
  1. DIPHENHYDRAMINE HCL [Concomitant]
     Dates: start: 20120405
  2. COPAXONE [Suspect]
     Indication: MULTIPLE SCLEROSIS
     Route: 058

REACTIONS (13)
  - CHEST DISCOMFORT [None]
  - DIARRHOEA [None]
  - UNRESPONSIVE TO STIMULI [None]
  - BACK PAIN [None]
  - HYPOAESTHESIA [None]
  - FACE OEDEMA [None]
  - VOMITING [None]
  - TREMOR [None]
  - PAIN [None]
  - DYSPNOEA [None]
  - PALLOR [None]
  - HYPOTENSION [None]
  - FATIGUE [None]
